FAERS Safety Report 24999162 (Version 2)
Quarter: 2025Q2

REPORT INFORMATION
  Report Type: Spontaneous
  Country: US (occurrence: US)
  Receive Date: 20250222
  Receipt Date: 20250514
  Transmission Date: 20250716
  Serious: No
  Sender: SANOFI AVENTIS
  Company Number: US-SA-2025SA045054

PATIENT
  Age: 56 Year
  Sex: Female

DRUGS (3)
  1. DUPIXENT [Suspect]
     Active Substance: DUPILUMAB
     Indication: Asthma
     Route: 058
     Dates: start: 20241219, end: 20241219
  2. DUPIXENT [Suspect]
     Active Substance: DUPILUMAB
     Dosage: 300 MG, QOW
     Route: 058
     Dates: start: 2025
  3. XOLAIR [Concomitant]
     Active Substance: OMALIZUMAB

REACTIONS (12)
  - Fatigue [Unknown]
  - Arthralgia [Recovered/Resolved]
  - Tympanic membrane perforation [Unknown]
  - Hypersensitivity [Unknown]
  - Back injury [Unknown]
  - Intervertebral disc protrusion [Recovering/Resolving]
  - Toothache [Unknown]
  - Radiculopathy [Recovering/Resolving]
  - Gait disturbance [Unknown]
  - Intervertebral disc degeneration [Unknown]
  - Cough [Recovering/Resolving]
  - Dyspnoea [Recovering/Resolving]

NARRATIVE: CASE EVENT DATE: 20250101
